FAERS Safety Report 22519895 (Version 7)
Quarter: 2023Q4

REPORT INFORMATION
  Report Type: Report from Study
  Country: TR (occurrence: None)
  Receive Date: 20230605
  Receipt Date: 20231123
  Transmission Date: 20240110
  Serious: Yes (Life-Threatening)
  Sender: FDA-Public Use
  Company Number: TR-ROCHE-3359627

PATIENT
  Age: 57 Year
  Sex: Male
  Weight: 89 kg

DRUGS (13)
  1. ATEZOLIZUMAB [Suspect]
     Active Substance: ATEZOLIZUMAB
     Indication: Small cell lung cancer extensive stage
     Dosage: DOSE LAST STUDY DRUG ADMIN PRIOR AE/SAE IS 1200 MG. ?START DATE OF MOST RECENT DOSE OF STUDY DRUG PR
     Route: 041
     Dates: start: 20221107
  2. LURBINECTEDIN [Suspect]
     Active Substance: LURBINECTEDIN
     Indication: Small cell lung cancer extensive stage
     Dosage: DOSE LAST STUDY DRUG ADMIN PRIOR AE/SAE: 6.4 MG?START DATE OF MOST RECENT DOSE OF STUDY DRUG PRIOR T
     Route: 042
     Dates: start: 20230221
  3. CARBOPLATIN [Suspect]
     Active Substance: CARBOPLATIN
     Indication: Small cell lung cancer extensive stage
     Dosage: ON 10/JAN/2023 RECEIVED THE MOST RECENT DOSE OF CARBOPLATIN (500 MG) PRIOR TO AE/SAE.
     Route: 042
     Dates: start: 20221107
  4. CARBOPLATIN [Suspect]
     Active Substance: CARBOPLATIN
     Dosage: DOSE LAST STUDY DRUG ADMIN PRIOR AE/SAE: 500 MG?START DATE OF MOST RECENT DOSE OF STUDY DRUG PRIOR T
     Route: 042
  5. ETOPOSIDE [Suspect]
     Active Substance: ETOPOSIDE
     Indication: Small cell lung cancer extensive stage
     Dosage: DOSE LAST STUDY DRUG ADMIN PRIOR AE/SAE: 180 MG?START DATE OF MOST RECENT DOSE OF STUDY DRUG PRIOR T
     Route: 042
     Dates: start: 20221107
  6. GRANITRON [Concomitant]
     Dates: start: 20221107
  7. ESCITALOPRAM OXALATE [Concomitant]
     Active Substance: ESCITALOPRAM OXALATE
     Indication: Anxiety
     Dates: start: 20221129
  8. PHENIRAMINE HYDROGEN MALEATE [Concomitant]
     Dates: start: 20221107
  9. GRANISETRON [Concomitant]
     Active Substance: GRANISETRON
     Dates: start: 20221107
  10. FRAVEN [Concomitant]
     Route: 058
     Dates: start: 20221107
  11. DEKSAMETAZON [Concomitant]
     Dates: start: 20230221
  12. FLURBIPROFEN [Concomitant]
     Active Substance: FLURBIPROFEN
     Indication: Oral pain
     Dates: start: 20230310
  13. KLAMOKS [Concomitant]
     Dates: start: 20230630, end: 20230710

REACTIONS (1)
  - Thrombophlebitis [Recovered/Resolved]

NARRATIVE: CASE EVENT DATE: 20230529
